FAERS Safety Report 5280212-8 (Version None)
Quarter: 2007Q1

REPORT INFORMATION
  Report Type: 
  Country: None (occurrence: None)
  Receive Date: 20070329
  Receipt Date: 20070321
  Transmission Date: 20070707
  Serious: Yes (Death)
  Sender: FDA-Public Use
  Company Number: HQWYE506622MAR07

PATIENT
  Sex: Male

DRUGS (1)
  1. RAPAMUNE [Suspect]
     Indication: HEART TRANSPLANT
     Dosage: UNSPECIFIED
     Route: 048

REACTIONS (1)
  - CEREBROVASCULAR ACCIDENT [None]
